FAERS Safety Report 7701822-1 (Version None)
Quarter: 2011Q3

REPORT INFORMATION
  Report Type: 
  Country: None (occurrence: None)
  Receive Date: 20110822
  Receipt Date: 20110816
  Transmission Date: 20111222
  Serious: Yes (Hospitalization)
  Sender: FDA-Public Use
  Company Number: US-B.I. PHARMACEUTICALS,INC./RIDGEFIELD-2011-BP-18719BP

PATIENT
  Sex: Female

DRUGS (4)
  1. ZOCOR [Concomitant]
     Dosage: 10 MG
     Dates: start: 20100125
  2. DIOVAN [Concomitant]
     Dosage: 320 MG
     Dates: start: 20070707, end: 20110525
  3. PRADAXA [Suspect]
     Indication: ATRIAL FIBRILLATION
     Dosage: 300 MG
     Dates: start: 20110510, end: 20110705
  4. TOPROL-XL [Concomitant]
     Dosage: 200 MG
     Dates: start: 20110411

REACTIONS (5)
  - GASTRITIS [None]
  - ATRIAL FIBRILLATION [None]
  - DIARRHOEA [None]
  - NAUSEA [None]
  - ABDOMINAL PAIN [None]
